FAERS Safety Report 10896274 (Version 1)
Quarter: 2015Q1

REPORT INFORMATION
  Report Type: Spontaneous
  Country: US (occurrence: None)
  Receive Date: 20150302
  Receipt Date: 20150302
  Transmission Date: 20150721
  Serious: Yes (Other)
  Sender: FDA-Public Use
  Company Number: None

PATIENT
  Age: 46 Year
  Sex: Female

DRUGS (1)
  1. LUPRON DEPOT [Suspect]
     Active Substance: LEUPROLIDE ACETATE
     Dosage: STRENGTH: 11.25MG???

REACTIONS (4)
  - Pain in jaw [None]
  - Hypoaesthesia [None]
  - Vaginal discharge [None]
  - Paraesthesia [None]

NARRATIVE: CASE EVENT DATE: 20141226
